FAERS Safety Report 16820365 (Version 1)
Quarter: 2019Q3

REPORT INFORMATION
  Report Type: Spontaneous
  Country: DE (occurrence: DE)
  Receive Date: 20190918
  Receipt Date: 20190918
  Transmission Date: 20191005
  Serious: Yes (Other)
  Sender: FDA-Public Use
  Company Number: DE-BEH-2019106921

PATIENT
  Sex: Female

DRUGS (2)
  1. SOBELIN (CLINDAMYCIN HYDROCHLORIDE) [Suspect]
     Active Substance: CLINDAMYCIN HYDROCHLORIDE
     Indication: PRODUCT USED FOR UNKNOWN INDICATION
     Dosage: UNK, BIW
     Route: 065
  2. HIZENTRA [Suspect]
     Active Substance: HUMAN IMMUNOGLOBULIN G
     Indication: AUTOIMMUNE DISORDER
     Route: 065

REACTIONS (5)
  - Lung infection [Unknown]
  - Cystitis klebsiella [Unknown]
  - Osteomyelitis [Unknown]
  - Vaginal infection [Unknown]
  - Klebsiella infection [Unknown]
